FAERS Safety Report 9964570 (Version 1)
Quarter: 2014Q1

REPORT INFORMATION
  Report Type: Spontaneous
  Country: US (occurrence: US)
  Receive Date: 20140305
  Receipt Date: 20140305
  Transmission Date: 20141002
  Serious: No
  Sender: FDA-Public Use
  Company Number: US-BAXTER-2014BAX010052

PATIENT
  Age: 51 Year
  Sex: Female

DRUGS (2)
  1. GAMMAGARD LIQUID [Suspect]
     Indication: NEUROPATHY PERIPHERAL
     Dosage: 5 BOTTLES
     Route: 042
     Dates: start: 20140217
  2. GAMMAGARD LIQUID [Suspect]
     Indication: OFF LABEL USE

REACTIONS (2)
  - Chromaturia [Not Recovered/Not Resolved]
  - Insomnia [Not Recovered/Not Resolved]
